FAERS Safety Report 8609097-6 (Version None)
Quarter: 2012Q3

REPORT INFORMATION
  Report Type: 
  Country: None (occurrence: None)
  Receive Date: 20120821
  Receipt Date: 20120814
  Transmission Date: 20120928
  Serious: Yes (Life-Threatening, Hospitalization)
  Sender: FDA-Public Use
  Company Number: US-JNJFOC-20120809572

PATIENT
  Sex: Female

DRUGS (9)
  1. ANTIBIOTICS [Concomitant]
     Indication: IRRITABLE BOWEL SYNDROME
  2. MERCAPTOPURINE [Concomitant]
     Dates: start: 20110427
  3. MERCAPTOPURINE [Concomitant]
     Dates: start: 20061120
  4. MESALAMINE [Concomitant]
     Route: 048
  5. SYSTEMIC CORTICOSTEROIDS [Concomitant]
     Route: 042
  6. REMICADE [Suspect]
     Route: 042
     Dates: start: 20100607
  7. ACETAMINOPHEN [Suspect]
     Indication: PRODUCT USED FOR UNKNOWN INDICATION
  8. REMICADE [Suspect]
     Indication: CROHN'S DISEASE
     Route: 042
     Dates: start: 20120420
  9. PROBIOTICS [Concomitant]

REACTIONS (2)
  - HEPATIC FAILURE [None]
  - OVERDOSE [None]
